FAERS Safety Report 6523507-X (Version None)
Quarter: 2009Q4

REPORT INFORMATION
  Report Type: 
  Country: None (occurrence: None)
  Receive Date: 20091231
  Receipt Date: 20091219
  Transmission Date: 20100525
  Serious: Yes (Other)
  Sender: FDA-Public Use
  Company Number: CHPA2009JP21951

PATIENT
  Age: 60 Year
  Sex: Male

DRUGS (4)
  1. LAMISIL [Suspect]
     Indication: TINEA INFECTION
     Dosage: 125 MG, UNK
     Route: 048
  2. BERAPROST SODIUM [Suspect]
     Indication: CARDIAC DISORDER
     Route: 048
  3. ETHYL ICOSAPENTATE [Suspect]
     Indication: CARDIAC DISORDER
     Route: 048
  4. LAMISIL [Concomitant]
     Route: 061

REACTIONS (7)
  - ALANINE AMINOTRANSFERASE INCREASED [None]
  - ASPARTATE AMINOTRANSFERASE INCREASED [None]
  - BLOOD ALKALINE PHOSPHATASE INCREASED [None]
  - FEELING COLD [None]
  - GAMMA-GLUTAMYLTRANSFERASE INCREASED [None]
  - HEPATIC FUNCTION ABNORMAL [None]
  - TREMOR [None]
